FAERS Safety Report 4507758-1 (Version None)
Quarter: 2004Q4

REPORT INFORMATION
  Report Type: 
  Country: None (occurrence: None)
  Receive Date: 20041123
  Receipt Date: 20041117
  Transmission Date: 20050328
  Serious: Yes (Hospitalization)
  Sender: FDA-Public Use
  Company Number: 200413530JP

PATIENT
  Sex: 0

DRUGS (2)
  1. LANTUS [Suspect]
     Indication: DIABETES MELLITUS
  2. OPTIPEN [Suspect]
     Indication: DIABETES MELLITUS

REACTIONS (2)
  - ATRIOVENTRICULAR BLOCK COMPLETE [None]
  - PULSE ABSENT [None]
